FAERS Safety Report 15947381 (Version 1)
Quarter: 2019Q1

REPORT INFORMATION
  Report Type: Spontaneous
  Country: IT (occurrence: IT)
  Receive Date: 20190212
  Receipt Date: 20190212
  Transmission Date: 20190417
  Serious: Yes (Other)
  Sender: FDA-Public Use
  Company Number: IT-AUROBINDO-AUR-APL-2019-007084

PATIENT

DRUGS (2)
  1. CAPECITABINE. [Suspect]
     Active Substance: CAPECITABINE
     Indication: COLON CANCER RECURRENT
     Dosage: 3000 MILLIGRAM, CYCLICAL
     Route: 048
     Dates: start: 20180712
  2. OXALIPLATIN. [Suspect]
     Active Substance: OXALIPLATIN
     Indication: COLON CANCER RECURRENT
     Dosage: 185 MILLIGRAM, CYCLICAL
     Route: 042
     Dates: start: 20180712

REACTIONS (2)
  - Lipase increased [Recovering/Resolving]
  - Amylase increased [Recovering/Resolving]

NARRATIVE: CASE EVENT DATE: 20180821
